FAERS Safety Report 8520631-7 (Version None)
Quarter: 2012Q3

REPORT INFORMATION
  Report Type: 
  Country: None (occurrence: None)
  Receive Date: 20120719
  Receipt Date: 20120703
  Transmission Date: 20120928
  Serious: Yes (Death, Hospitalization)
  Sender: FDA-Public Use
  Company Number: GB-009507513-2012SP000978

PATIENT

DRUGS (10)
  1. DEXAMETHASONE [Suspect]
     Dosage: 3 MG, QD
     Dates: start: 20111224, end: 20111228
  2. GRANULOCYTE-MACROPHAGE COLONY STIMULATING FACTOR (UNSPECIFIED) [Suspect]
     Indication: GLIOBLASTOMA
     Dosage: 75 MCG, QD
     Route: 023
     Dates: start: 20110727, end: 20110727
  3. GRANULOCYTE-MACROPHAGE COLONY STIMULATING FACTOR (UNSPECIFIED) [Suspect]
     Dosage: 75 MCG, QD
     Route: 023
     Dates: start: 20110816, end: 20110816
  4. [COMPOSITION UNSPECIFIED] [Suspect]
     Dosage: 4.96 MG, QD
     Route: 023
     Dates: start: 20110816, end: 20110816
  5. GRANULOCYTE-MACROPHAGE COLONY STIMULATING FACTOR (UNSPECIFIED) [Suspect]
     Dosage: 75 MCG, QD
     Route: 023
     Dates: start: 20111206, end: 20111206
  6. DEXAMETHASONE [Suspect]
     Dosage: 2 MG, QD
     Dates: start: 20111229, end: 20120112
  7. DEXAMETHASONE [Suspect]
     Dosage: 4 MG, QD
     Dates: start: 20111121, end: 20111223
  8. [COMPOSITION UNSPECIFIED] [Suspect]
     Indication: GLIOBLASTOMA
     Dosage: 4.96 MG, QD
     Route: 023
     Dates: start: 20110727, end: 20110727
  9. TEMOZOLOMIDE [Suspect]
     Indication: GLIOBLASTOMA
     Dosage: 75 MG/M2
     Route: 048
     Dates: start: 20110803, end: 20111218
  10. [COMPOSITION UNSPECIFIED] [Suspect]
     Dosage: 4.96 MG, QD
     Route: 023
     Dates: start: 20111206, end: 20111206

REACTIONS (3)
  - ORAL CANDIDIASIS [None]
  - PRESYNCOPE [None]
  - VIRAL UPPER RESPIRATORY TRACT INFECTION [None]
